FAERS Safety Report 12482588 (Version 1)
Quarter: 2016Q2

REPORT INFORMATION
  Report Type: Spontaneous
  Country: US (occurrence: US)
  Receive Date: 20160620
  Receipt Date: 20160620
  Transmission Date: 20160815
  Serious: No
  Sender: FDA-Public Use
  Company Number: PHEH2016US015296

PATIENT
  Age: 82 Year
  Sex: Male

DRUGS (1)
  1. JADENU [Suspect]
     Active Substance: DEFERASIROX
     Indication: ACUTE MYELOID LEUKAEMIA
     Dosage: 14 MG/KG, QD
     Route: 048
     Dates: start: 20160301, end: 20160527

REACTIONS (2)
  - Creatinine renal clearance [Recovering/Resolving]
  - Abdominal discomfort [Recovering/Resolving]

NARRATIVE: CASE EVENT DATE: 20160504
